FAERS Safety Report 9149697 (Version 1)
Quarter: 2013Q1

REPORT INFORMATION
  Report Type: Spontaneous
  Country: US (occurrence: US)
  Receive Date: 20130308
  Receipt Date: 20130308
  Transmission Date: 20140127
  Serious: Yes (Hospitalization)
  Sender: FDA-Public Use
  Company Number: US-BAYER-2013-028029

PATIENT
  Age: 29 Year
  Sex: Female
  Weight: 67.57 kg

DRUGS (9)
  1. YAZ [Suspect]
  2. YASMIN [Suspect]
  3. TORADOL [Concomitant]
  4. PHENERGAN [Concomitant]
  5. VALIUM [Concomitant]
  6. HYDROCODONE [Concomitant]
  7. FLEXERIL [Concomitant]
  8. DILAUDID [Concomitant]
  9. NEXIUM [Concomitant]

REACTIONS (1)
  - Pulmonary embolism [Recovered/Resolved]
